FAERS Safety Report 9417543 (Version 1)
Quarter: 2013Q3

REPORT INFORMATION
  Report Type: Spontaneous
  Country: ES (occurrence: ES)
  Receive Date: 20130724
  Receipt Date: 20130724
  Transmission Date: 20140515
  Serious: Yes (Other)
  Sender: FDA-Public Use
  Company Number: ES-PFIZER INC-2013216675

PATIENT
  Age: 42 Year
  Sex: Female

DRUGS (1)
  1. CHAMPIX [Suspect]
     Indication: TOBACCO ABUSE
     Dosage: 0.5 MG, 1X/DAY
     Route: 048
     Dates: start: 20130615, end: 20130618

REACTIONS (2)
  - Cellulitis [Recovering/Resolving]
  - Psoriasis [Recovering/Resolving]
